FAERS Safety Report 4876349-5 (Version None)
Quarter: 2006Q1

REPORT INFORMATION
  Report Type: 
  Country: None (occurrence: None)
  Receive Date: 20060110
  Receipt Date: 20051129
  Transmission Date: 20060701
  Serious: Yes (Other)
  Sender: FDA-Public Use
  Company Number: PHBS2005CL17912

PATIENT
  Age: 60 Year
  Sex: Male

DRUGS (1)
  1. TAREG D [Suspect]
     Dosage: VALS 80 / HCT 12.5 MG/DAY
     Route: 048
     Dates: start: 20050801

REACTIONS (1)
  - HAEMORRHAGE [None]
